FAERS Safety Report 4751841-2 (Version None)
Quarter: 2005Q3

REPORT INFORMATION
  Report Type: 
  Country: None (occurrence: None)
  Receive Date: 20050822
  Receipt Date: 20050726
  Transmission Date: 20060218
  Serious: Yes (Other)
  Sender: FDA-Public Use
  Company Number: PHEH2005US08000

PATIENT
  Age: 23 Year
  Sex: Female
  Weight: 57.6 kg

DRUGS (2)
  1. ZELNORM [Suspect]
     Indication: CONSTIPATION
     Dosage: 6 MG, BID ORAL
     Route: 048
     Dates: start: 20050405, end: 20050701
  2. PREVACID [Concomitant]

REACTIONS (6)
  - BIOPSY RECTUM ABNORMAL [None]
  - COLITIS ISCHAEMIC [None]
  - ERYTHEMA [None]
  - OEDEMA MUCOSAL [None]
  - PROCTITIS [None]
  - RECTAL HAEMORRHAGE [None]
